FAERS Safety Report 6809843-8 (Version None)
Quarter: 2010Q2

REPORT INFORMATION
  Report Type: 
  Country: None (occurrence: None)
  Receive Date: 20100630
  Receipt Date: 20100625
  Transmission Date: 20101027
  Serious: Yes (Other)
  Sender: FDA-Public Use
  Company Number: US-BAYER-201014193BCC

PATIENT
  Age: 51 Year
  Sex: Female
  Weight: 81 kg

DRUGS (3)
  1. ALEVE (CAPLET) [Suspect]
     Indication: HEADACHE
     Dosage: TOTAL DAILY DOSE: 220 MG  UNIT DOSE: 220 MG
     Route: 048
     Dates: start: 20100411
  2. LORCET-HD [Concomitant]
     Route: 065
  3. FLEXALL [Concomitant]
     Route: 065

REACTIONS (7)
  - ARTHRALGIA [None]
  - CHOKING SENSATION [None]
  - DYSGEUSIA [None]
  - EAR PAIN [None]
  - GLOSSODYNIA [None]
  - ORAL DISCOMFORT [None]
  - OROPHARYNGEAL PAIN [None]
